FAERS Safety Report 17492925 (Version 2)
Quarter: 2020Q4

REPORT INFORMATION
  Report Type: Spontaneous
  Country: GB (occurrence: GB)
  Receive Date: 20200304
  Receipt Date: 20201007
  Transmission Date: 20210113
  Serious: Yes (Life-Threatening, Hospitalization, Other)
  Sender: FDA-Public Use
  Company Number: GB-TEVA-2020-GB-1193952

PATIENT
  Age: 54 Year
  Sex: Male
  Weight: 73 kg

DRUGS (8)
  1. LIDOCAINE. [Concomitant]
     Active Substance: LIDOCAINE
     Route: 058
  2. METARAMINOL [Concomitant]
     Active Substance: METARAMINOL
  3. ATRACURIUM [Concomitant]
     Active Substance: ATRACURIUM
  4. MIDAZOLAM. [Concomitant]
     Active Substance: MIDAZOLAM
  5. ONDANSETRON HYDROCHLORIDE. [Suspect]
     Active Substance: ONDANSETRON HYDROCHLORIDE
     Indication: PROPHYLAXIS OF NAUSEA AND VOMITING
     Dosage: 4 MG
     Route: 042
     Dates: start: 20191101, end: 20191101
  6. PROPOFOL. [Concomitant]
     Active Substance: PROPOFOL
  7. LIDOCAINE. [Concomitant]
     Active Substance: LIDOCAINE
     Route: 042
  8. REMIFENTANIL [Concomitant]
     Active Substance: REMIFENTANIL

REACTIONS (1)
  - Anaphylactic reaction [Recovered/Resolved]

NARRATIVE: CASE EVENT DATE: 20191101
